FAERS Safety Report 8920315 (Version 1)
Quarter: 2012Q4

REPORT INFORMATION
  Report Type: 
  Country: FR (occurrence: FR)
  Receive Date: 20121121
  Receipt Date: 20121121
  Transmission Date: 20130627
  Serious: Yes (Other)
  Sender: FDA-Public Use
  Company Number: FR-WATSON-2012-19670

PATIENT
  Age: 54 Year
  Sex: Female

DRUGS (7)
  1. TRAMADOL [Suspect]
     Indication: MIGRAINE
     Dosage: 200 mg, daily
     Route: 048
     Dates: start: 20120907, end: 20120907
  2. TRAMADOL [Interacting]
     Indication: HEADACHE
  3. ACTISKENAN [Interacting]
     Indication: MIGRAINE
     Dosage: UNK
     Dates: start: 20120907, end: 20120907
  4. ACTISKENAN [Interacting]
     Indication: HEADACHE
  5. DAFALGAN [Suspect]
     Indication: MIGRAINE
     Dosage: UNK
     Dates: start: 20120907, end: 20120907
  6. DAFALGAN [Suspect]
     Indication: HEADACHE
  7. TEMERIT [Concomitant]
     Indication: PRODUCT USED FOR UNKNOWN INDICATION
     Dosage: 2.5 mg, daily

REACTIONS (10)
  - Somnolence [Recovering/Resolving]
  - Amnesia [Recovering/Resolving]
  - Syncope [Recovering/Resolving]
  - Memory impairment [Recovering/Resolving]
  - Panic attack [Recovering/Resolving]
  - Crying [Recovering/Resolving]
  - Inflammatory marker increased [Unknown]
  - Sinus disorder [Unknown]
  - Drug interaction [Unknown]
  - Photophobia [Recovering/Resolving]
